FAERS Safety Report 10420800 (Version 1)
Quarter: 2014Q3

REPORT INFORMATION
  Report Type: Spontaneous
  Country: US (occurrence: None)
  Receive Date: 20140829
  Receipt Date: 20140829
  Transmission Date: 20150326
  Serious: Yes (Life-Threatening, Disabling)
  Sender: FDA-Public Use
  Company Number: None

PATIENT
  Age: 73 Year
  Sex: Female
  Weight: 75 kg

DRUGS (1)
  1. ACTIVASE [Suspect]
     Active Substance: ALTEPLASE
     Indication: CEREBROVASCULAR ACCIDENT
     Dosage: 0.9 MG/KG ONE TIME INTRAVENOUS
     Route: 042
     Dates: start: 20140705

REACTIONS (3)
  - Cerebral haemorrhage [None]
  - Nervous system disorder [None]
  - Lip swelling [None]

NARRATIVE: CASE EVENT DATE: 20140705
